FAERS Safety Report 16171071 (Version 1)
Quarter: 2019Q2

REPORT INFORMATION
  Report Type: Spontaneous
  Country: IT (occurrence: IT)
  Receive Date: 20190408
  Receipt Date: 20190408
  Transmission Date: 20190711
  Serious: Yes (Death, Life-Threatening)
  Sender: FDA-Public Use
  Company Number: IT-PFIZER INC-HQWYE098209AUG04

PATIENT
  Age: 45 Year
  Sex: Female

DRUGS (24)
  1. DIAZEMULS [Suspect]
     Active Substance: DIAZEPAM
     Indication: AGITATION
     Dosage: UNK
     Route: 048
     Dates: start: 20021009, end: 20021104
  2. ALUMINIUM HYDROXIDE [Suspect]
     Active Substance: ALUMINUM HYDROXIDE
     Dosage: 4 ML, 3X/DAY
     Route: 065
     Dates: start: 20020927, end: 20021018
  3. POTASSIUM CHLORIDE. [Concomitant]
     Active Substance: POTASSIUM CHLORIDE
     Dosage: UNK
     Route: 065
     Dates: start: 20021009
  4. CORTISONE ACETATE. [Suspect]
     Active Substance: CORTISONE ACETATE
     Dosage: 25 MG, 2X/DAY
     Route: 065
     Dates: start: 20020927, end: 20021102
  5. HALOPERIDOL. [Suspect]
     Active Substance: HALOPERIDOL
     Indication: HALLUCINATION
  6. ITRACONAZOLE. [Suspect]
     Active Substance: ITRACONAZOLE
     Indication: ORAL CANDIDIASIS
     Dosage: 100 MG, 1X/DAY
     Route: 065
     Dates: start: 20021009, end: 20021104
  7. PANTOPAN [Suspect]
     Active Substance: PANTOPRAZOLE SODIUM
     Indication: PROPHYLAXIS
     Dosage: UNK
     Route: 048
     Dates: start: 20021009, end: 20021018
  8. FLUDROCORTISONE [Suspect]
     Active Substance: FLUDROCORTISONE
     Dosage: 4 ML, 3X/DAY
     Route: 065
     Dates: start: 20020927, end: 20021024
  9. LEVOFLOXACIN. [Suspect]
     Active Substance: LEVOFLOXACIN
     Indication: PNEUMONIA
     Dosage: 500 MG -FREQUENCY UNSPECIFIED
     Route: 065
     Dates: start: 20021004, end: 20021019
  10. PANTOPAN [Suspect]
     Active Substance: PANTOPRAZOLE SODIUM
     Dosage: UNK
     Route: 042
     Dates: start: 20021027
  11. FUROSEMIDE. [Suspect]
     Active Substance: FUROSEMIDE
     Indication: RENAL IMPAIRMENT
     Dosage: UNK
     Route: 042
     Dates: start: 20021027
  12. OMEPRAZOLE. [Suspect]
     Active Substance: OMEPRAZOLE
     Dosage: 20 MG, 1X/DAY
     Route: 065
     Dates: start: 20020927, end: 20021102
  13. CALCIUM CARBONATE. [Suspect]
     Active Substance: CALCIUM CARBONATE
     Dosage: 1, 1X/DAY
     Route: 065
     Dates: end: 20021008
  14. CALCITROL [Suspect]
     Active Substance: CALCITRIOL
     Dosage: 0.5 UG, 1X/DAY
     Route: 065
     Dates: start: 20020927, end: 20021104
  15. MAGNESIUM HYDROXIDE. [Suspect]
     Active Substance: MAGNESIUM HYDROXIDE
     Dosage: 4 ML, 3X/DAY
     Route: 065
     Dates: start: 20020927, end: 20021018
  16. FUROSEMIDE. [Suspect]
     Active Substance: FUROSEMIDE
     Indication: OLIGURIA
     Dosage: UNK
     Route: 048
     Dates: start: 20021004, end: 20021015
  17. DIAZEMULS [Suspect]
     Active Substance: DIAZEPAM
     Indication: HALLUCINATION
  18. HALOPERIDOL. [Suspect]
     Active Substance: HALOPERIDOL
     Indication: AGITATION
     Dosage: UNK
     Dates: start: 20021009, end: 20021104
  19. POTASSIUM CANRENOATE [Suspect]
     Active Substance: CANRENOATE POTASSIUM
     Indication: OLIGURIA
     Dosage: UNK
     Route: 048
     Dates: start: 20021004, end: 20021015
  20. POTASSIUM CANRENOATE [Suspect]
     Active Substance: CANRENOATE POTASSIUM
     Indication: RENAL IMPAIRMENT
     Dosage: UNK
     Route: 042
     Dates: start: 20021027
  21. CALCIUM GLUCONATE. [Concomitant]
     Active Substance: CALCIUM GLUCONATE
     Dosage: UNK
     Route: 065
     Dates: start: 20021009
  22. CLAVAMOX [Suspect]
     Active Substance: AMOXICILLIN\CLAVULANATE POTASSIUM
     Indication: PNEUMONIA
     Dosage: 1200 MG, 3X/DAY
     Route: 042
     Dates: start: 20021004, end: 20021019
  23. CALCIUM LACTOGLUCONATE [Suspect]
     Active Substance: CALCIUM LACTATE GLUCONATE ANHYDROUS
     Dosage: 1, 1X/DAY
     Route: 065
     Dates: end: 20021008
  24. NYSTATIN. [Suspect]
     Active Substance: NYSTATIN
     Dosage: 4 ML, 3X/DAY
     Route: 065
     Dates: end: 20021008

REACTIONS (2)
  - Toxic epidermal necrolysis [Not Recovered/Not Resolved]
  - Septic shock [Fatal]

NARRATIVE: CASE EVENT DATE: 20021101
